FAERS Safety Report 20742719 (Version 1)
Quarter: 2022Q2

REPORT INFORMATION
  Report Type: Spontaneous
  Country: US (occurrence: US)
  Receive Date: 20220424
  Receipt Date: 20220424
  Transmission Date: 20220721
  Serious: No
  Sender: FDA-Public Use
  Company Number: US-SA-SAC20220419000121

PATIENT
  Age: 77 Year
  Sex: Female

DRUGS (3)
  1. DUPIXENT [Suspect]
     Active Substance: DUPILUMAB
     Indication: Dermatitis atopic
     Dosage: 300 MG, QOW
     Route: 058
     Dates: start: 20190222, end: 20220404
  2. AZELASTINE [Concomitant]
     Active Substance: AZELASTINE
     Dosage: UNK
  3. FLUTICASONE [Concomitant]
     Active Substance: FLUTICASONE
     Dosage: UNK

REACTIONS (2)
  - Insomnia [Unknown]
  - Inflammation [Unknown]

NARRATIVE: CASE EVENT DATE: 20220312
